FAERS Safety Report 7369798-7 (Version None)
Quarter: 2011Q1

REPORT INFORMATION
  Report Type: 
  Country: None (occurrence: None)
  Receive Date: 20110323
  Receipt Date: 20110318
  Transmission Date: 20110831
  Serious: Yes (Death, Hospitalization)
  Sender: FDA-Public Use
  Company Number: US-CEPHALON-2011001279

PATIENT
  Age: 85 Year
  Sex: Female

DRUGS (3)
  1. BENDAMUSTINE HCL [Suspect]
     Indication: CHRONIC LYMPHOCYTIC LEUKAEMIA
     Route: 041
     Dates: start: 20110301, end: 20110301
  2. ELITEK [Suspect]
     Dates: start: 20110301, end: 20110301
  3. RITUXIMAB [Suspect]
     Indication: CHRONIC LYMPHOCYTIC LEUKAEMIA
     Dates: start: 20110301, end: 20110301

REACTIONS (2)
  - DEATH [None]
  - UNRESPONSIVE TO STIMULI [None]
